FAERS Safety Report 8413177-8 (Version None)
Quarter: 2012Q2

REPORT INFORMATION
  Report Type: 
  Country: None (occurrence: None)
  Receive Date: 20120605
  Receipt Date: 20120525
  Transmission Date: 20120825
  Serious: Yes (Other)
  Sender: FDA-Public Use
  Company Number: BR-SANOFI-AVENTIS-2012SA037803

PATIENT
  Age: 54 Year
  Sex: Female
  Weight: 59 kg

DRUGS (1)
  1. TAXOTERE [Suspect]
     Indication: ADJUVANT THERAPY
     Route: 042
     Dates: start: 20120207, end: 20120207

REACTIONS (4)
  - GASTRITIS [None]
  - DIARRHOEA [None]
  - OESOPHAGITIS [None]
  - PALMAR-PLANTAR ERYTHRODYSAESTHESIA SYNDROME [None]
